FAERS Safety Report 4432524-5 (Version None)
Quarter: 2004Q3

REPORT INFORMATION
  Report Type: 
  Country: None (occurrence: None)
  Receive Date: 20040820
  Receipt Date: 20040805
  Transmission Date: 20050211
  Serious: Yes (Hospitalization, Disabling)
  Sender: FDA-Public Use
  Company Number: 002#4#2004-00127

PATIENT
  Age: 40 Year
  Sex: Male

DRUGS (3)
  1. PPA/CPM-75/8MG (OTC) (PHENYLPROPANOLAMINE HCL, CHLORPHENIRAMINE MALEAT [Suspect]
     Indication: NASOPHARYNGITIS
     Dosage: ORAL
     Route: 048
     Dates: start: 19970707, end: 19970710
  2. ACETYLSALICYLIC ACID [Concomitant]
  3. DILTIAZEM [Concomitant]

REACTIONS (3)
  - BLOOD CHOLESTEROL INCREASED [None]
  - BLOOD PRESSURE INCREASED [None]
  - HAEMORRHAGIC STROKE [None]
